FAERS Safety Report 8516763-X (Version None)
Quarter: 2012Q2

REPORT INFORMATION
  Report Type: 
  Country: None (occurrence: None)
  Receive Date: 20120406
  Receipt Date: 20100129
  Transmission Date: 20120825
  Serious: Yes (Other)
  Sender: FDA-Public Use
  Company Number: PHEH2009US10356

PATIENT
  Age: 54 Year
  Sex: Female

DRUGS (9)
  1. VITAMIN TAB [Concomitant]
  2. CALCIFEROL (ERGOCALCIFEROL) [Concomitant]
  3. LUNESTA [Concomitant]
  4. LIPITOR [Concomitant]
  5. LEXAPRO [Concomitant]
  6. TASIGNA [Suspect]
     Indication: CHRONIC MYELOID LEUKAEMIA
     Dosage: 400 MG, BID
     Dates: start: 20090623
  7. CALCIUM CARBONATE [Concomitant]
  8. OSCAL (CALCIUM CARBONATE) [Concomitant]
  9. ASPIRIN [Concomitant]

REACTIONS (3)
  - RASH [None]
  - CHRONIC MYELOID LEUKAEMIA [None]
  - FOLLICULITIS [None]
